FAERS Safety Report 21412503 (Version 1)
Quarter: 2022Q4

REPORT INFORMATION
  Report Type: Spontaneous
  Country: US (occurrence: US)
  Receive Date: 20221005
  Receipt Date: 20221005
  Transmission Date: 20230113
  Serious: No
  Sender: FDA-Public Use
  Company Number: US-INTRA-CELLULAR THERAPIES, INC.-2022ICT01003

PATIENT
  Age: 69 Year
  Sex: Female
  Weight: 96.145 kg

DRUGS (8)
  1. CAPLYTA [Suspect]
     Active Substance: LUMATEPERONE
     Indication: Bipolar I disorder
     Dosage: 42 MG, 1X/DAY
     Route: 048
     Dates: start: 20220331, end: 202204
  2. CAPLYTA [Suspect]
     Active Substance: LUMATEPERONE
     Indication: Depression
     Dosage: 42 MG, 1X/DAY
     Route: 048
     Dates: start: 202204, end: 20220522
  3. CARIPRAZINE [Suspect]
     Active Substance: CARIPRAZINE
     Dosage: UNK
  4. CARIPRAZINE [Suspect]
     Active Substance: CARIPRAZINE
     Dosage: TAPERING OFF
  5. GABAPENTIN [Concomitant]
     Active Substance: GABAPENTIN
  6. HYDROXYZINE PAMOATE [Concomitant]
     Active Substance: HYDROXYZINE PAMOATE
     Dosage: UNK, AS NEEDED
  7. BENZTROPINE [Concomitant]
     Active Substance: BENZTROPINE
     Dosage: UNK, AS NEEDED
  8. VORTIOXETINE [Concomitant]
     Active Substance: VORTIOXETINE

REACTIONS (5)
  - Irritability [Recovered/Resolved]
  - Agitation [Recovered/Resolved]
  - Dry mouth [Unknown]
  - Tremor [Unknown]
  - Sedation [Recovering/Resolving]

NARRATIVE: CASE EVENT DATE: 20220101
